FAERS Safety Report 7804746-4 (Version None)
Quarter: 2011Q4

REPORT INFORMATION
  Report Type: 
  Country: None (occurrence: None)
  Receive Date: 20111010
  Receipt Date: 20111003
  Transmission Date: 20120403
  Serious: Yes (Death)
  Sender: FDA-Public Use
  Company Number: JP-CELGENEUS-087-21880-11091880

PATIENT
  Sex: Female

DRUGS (8)
  1. GOODMIN [Concomitant]
     Dosage: .25 MILLIGRAM
     Route: 048
     Dates: start: 20110118, end: 20110214
  2. CYTARABINE [Concomitant]
     Dosage: 28 MILLIGRAM
     Route: 065
     Dates: start: 20110208, end: 20110218
  3. CYTARABINE [Concomitant]
     Dosage: 28 MILLIGRAM
     Route: 065
     Dates: start: 20101119, end: 20101202
  4. CYTARABINE [Concomitant]
     Dosage: 28 MILLIGRAM
     Route: 065
     Dates: start: 20110121, end: 20110203
  5. ACLARUBICIN HYDROCHLORIDE [Concomitant]
     Dosage: 20 MILLIGRAM
     Route: 065
     Dates: start: 20110208, end: 20110211
  6. NEUPOGEN [Concomitant]
     Dosage: 150 MILLIGRAM
     Route: 065
     Dates: start: 20110208, end: 20110214
  7. MAGMITT [Concomitant]
     Dosage: 660 MILLIGRAM
     Route: 048
     Dates: start: 20110118, end: 20110214
  8. REVLIMID [Suspect]
     Dosage: 10 MILLIGRAM
     Route: 048
     Dates: start: 20110118, end: 20110121

REACTIONS (2)
  - ACUTE MYELOID LEUKAEMIA [None]
  - MYELODYSPLASTIC SYNDROME TRANSFORMATION [None]
